FAERS Safety Report 8154002-2 (Version None)
Quarter: 2012Q1

REPORT INFORMATION
  Report Type: 
  Country: None (occurrence: None)
  Receive Date: 20120221
  Receipt Date: 20120221
  Transmission Date: 20120608
  Serious: Yes (Other)
  Sender: FDA-Public Use
  Company Number: None

PATIENT
  Age: 63 Year
  Sex: Female
  Weight: 65.77 kg

DRUGS (1)
  1. LIPITOR [Suspect]
     Indication: BLOOD CHOLESTEROL INCREASED
     Dosage: 10 MGS.
     Route: 048
     Dates: start: 20110415, end: 20120218

REACTIONS (6)
  - AMNESIA [None]
  - VERTIGO [None]
  - PAIN IN EXTREMITY [None]
  - ARTHRALGIA [None]
  - ALOPECIA [None]
  - INSOMNIA [None]
